FAERS Safety Report 5587486-4 (Version None)
Quarter: 2007Q4

REPORT INFORMATION
  Report Type: 
  Country: None (occurrence: None)
  Receive Date: 20071205
  Receipt Date: 20070820
  Transmission Date: 20080405
  Serious: Yes (Other)
  Sender: FDA-Public Use
  Company Number: HQWYE731321AUG07

PATIENT
  Age: 27 Year
  Sex: Female
  Weight: 75.82 kg

DRUGS (6)
  1. EFFEXOR XR [Suspect]
     Indication: DEPRESSION
     Dosage: 375 MG, 337.5 MG, 300 MG, 225 MG 1 X PER 1 DAY, ORAL
     Route: 048
     Dates: start: 20010101, end: 20070808
  2. EFFEXOR XR [Suspect]
     Indication: DEPRESSION
     Dosage: 375 MG, 337.5 MG, 300 MG, 225 MG 1 X PER 1 DAY, ORAL
     Route: 048
     Dates: start: 20070809, end: 20070811
  3. EFFEXOR XR [Suspect]
     Indication: DEPRESSION
     Dosage: 375 MG, 337.5 MG, 300 MG, 225 MG 1 X PER 1 DAY, ORAL
     Route: 048
     Dates: start: 20070812, end: 20070815
  4. EFFEXOR XR [Suspect]
     Indication: DEPRESSION
     Dosage: 375 MG, 337.5 MG, 300 MG, 225 MG 1 X PER 1 DAY, ORAL
     Route: 048
     Dates: start: 20070815
  5. ULTRAM [Suspect]
     Indication: PAIN
     Dosage: 50 MG TWICE DAILY AS NEEDED
     Dates: start: 20070705, end: 20070801
  6. TOPAMAX [Concomitant]

REACTIONS (5)
  - DRUG WITHDRAWAL SYNDROME [None]
  - DYSPHEMIA [None]
  - PARAESTHESIA [None]
  - SEROTONIN SYNDROME [None]
  - TREMOR [None]
